FAERS Safety Report 7277203-4 (Version None)
Quarter: 2011Q1

REPORT INFORMATION
  Report Type: 
  Country: None (occurrence: None)
  Receive Date: 20110202
  Receipt Date: 20110202
  Transmission Date: 20110831
  Serious: Yes (Other)
  Sender: FDA-Public Use
  Company Number: None

PATIENT
  Age: 35 Year
  Sex: Male
  Weight: 88.4514 kg

DRUGS (1)
  1. CYMBALTA [Suspect]
     Indication: DEPRESSION
     Dosage: 120 MG 1 PO
     Route: 048
     Dates: start: 20101001, end: 20110124

REACTIONS (13)
  - YAWNING [None]
  - PRESYNCOPE [None]
  - SYNCOPE [None]
  - NIGHTMARE [None]
  - DIZZINESS [None]
  - FEELING JITTERY [None]
  - HYPERHIDROSIS [None]
  - DRY MOUTH [None]
  - ARTHRALGIA [None]
  - BLOOD PRESSURE INCREASED [None]
  - FATIGUE [None]
  - BLOOD MAGNESIUM [None]
  - MYALGIA [None]
